FAERS Safety Report 18533569 (Version 3)
Quarter: 2021Q1

REPORT INFORMATION
  Report Type: Report from Study
  Country: EG (occurrence: EG)
  Receive Date: 20201123
  Receipt Date: 20210311
  Transmission Date: 20210419
  Serious: Yes (Other)
  Sender: FDA-Public Use
  Company Number: EG-REGENERON PHARMACEUTICALS, INC.-2020-89727

PATIENT

DRUGS (3)
  1. EYLEA [Suspect]
     Active Substance: AFLIBERCEPT
     Dosage: UNK, ONCE, RIGHT EYE
     Route: 031
     Dates: start: 202009, end: 202009
  2. EYLEA [Suspect]
     Active Substance: AFLIBERCEPT
     Indication: PRODUCT USED FOR UNKNOWN INDICATION
     Dosage: UNK,
     Route: 031
     Dates: start: 202005
  3. EYLEA [Suspect]
     Active Substance: AFLIBERCEPT
     Dosage: TOTAL NUMBER OF INJECTIONS IS UNKNOWN (RIGHT EYE) + 1(LEFT EYE. THE LAST INJECTION WAS ON 31?JAN 202
     Dates: start: 20210131, end: 20210131

REACTIONS (3)
  - Eye haemorrhage [Not Recovered/Not Resolved]
  - Retinal injury [Not Recovered/Not Resolved]
  - Drug ineffective [Unknown]

NARRATIVE: CASE EVENT DATE: 202006
